FAERS Safety Report 4413050-6 (Version None)
Quarter: 2004Q3

REPORT INFORMATION
  Report Type: 
  Country: None (occurrence: None)
  Receive Date: 20040802
  Receipt Date: 20040720
  Transmission Date: 20050211
  Serious: Yes (Other)
  Sender: FDA-Public Use
  Company Number: PHFR2004GB02903

PATIENT
  Sex: Female

DRUGS (1)
  1. CLOZARIL [Suspect]
     Dosage: 100 MG IN ERROR
     Route: 048

REACTIONS (3)
  - CIRCULATORY COLLAPSE [None]
  - HYPOTENSION [None]
  - MEDICATION ERROR [None]
